FAERS Safety Report 15166176 (Version 1)
Quarter: 2018Q3

REPORT INFORMATION
  Report Type: Spontaneous
  Country: US (occurrence: US)
  Receive Date: 20180621
  Receipt Date: 20180621
  Transmission Date: 20181010
  Serious: Yes (Hospitalization, Disabling)
  Sender: FDA-Public Use
  Company Number: None

PATIENT
  Age: 53 Year
  Sex: Male
  Weight: 83.79 kg

DRUGS (1)
  1. SIROLIMUS. [Suspect]
     Active Substance: SIROLIMUS
     Indication: RECTAL CANCER
     Dosage: ?          OTHER FREQUENCY:THREE TIMES A WEEK;?
     Route: 048
     Dates: start: 20180104, end: 20180621

REACTIONS (6)
  - Faeces discoloured [None]
  - Gastrointestinal haemorrhage [None]
  - Therapy change [None]
  - Diarrhoea [None]
  - Melaena [None]
  - Hypophagia [None]

NARRATIVE: CASE EVENT DATE: 20180616
